FAERS Safety Report 4383283-6 (Version None)
Quarter: 2004Q2

REPORT INFORMATION
  Report Type: 
  Country: None (occurrence: None)
  Receive Date: 20040623
  Receipt Date: 20040518
  Transmission Date: 20050107
  Serious: Yes (Hospitalization)
  Sender: FDA-Public Use
  Company Number: 200412024FR

PATIENT
  Age: 60 Year
  Sex: Male

DRUGS (5)
  1. TAXOTERE [Suspect]
     Indication: BRONCHIAL CARCINOMA
     Dates: start: 20040219, end: 20040219
  2. EPIVIR [Suspect]
  3. KALETRA [Suspect]
  4. VIREAD [Suspect]
  5. CARBOPLATINE [Suspect]
     Dates: start: 20040115

REACTIONS (11)
  - ATROPHY OF TONGUE PAPILLAE [None]
  - DYSPHAGIA [None]
  - ERYTHEMA [None]
  - EYE DISORDER [None]
  - MUCOUS MEMBRANE DISORDER [None]
  - NAIL DISORDER [None]
  - NEUTROPHILIA [None]
  - PRURITUS [None]
  - STOMATITIS [None]
  - THROAT IRRITATION [None]
  - TOXIC SKIN ERUPTION [None]
